FAERS Safety Report 25660417 (Version 1)
Quarter: 2025Q3

REPORT INFORMATION
  Report Type: Spontaneous
  Country: CO (occurrence: EU)
  Receive Date: 20250808
  Receipt Date: 20250808
  Transmission Date: 20251021
  Serious: Yes (Life-Threatening, Other)
  Sender: BRISTOL-MYERS SQUIBB COMPANY
  Company Number: EU-BRISTOL-MYERS SQUIBB COMPANY-2025-107440

PATIENT
  Age: 53 Year
  Sex: Female

DRUGS (4)
  1. NIVOLUMAB [Suspect]
     Active Substance: NIVOLUMAB
     Indication: Lung squamous cell carcinoma stage IV
  2. NELVUTAMIG [Suspect]
     Active Substance: NELVUTAMIG
     Indication: Lung squamous cell carcinoma stage IV
  3. CARBOPLATIN [Suspect]
     Active Substance: CARBOPLATIN
     Indication: Lung squamous cell carcinoma stage IV
  4. PACLITAXEL [Suspect]
     Active Substance: PACLITAXEL
     Indication: Lung squamous cell carcinoma stage IV

REACTIONS (4)
  - Hypersensitivity [Unknown]
  - Back pain [Unknown]
  - Hypothyroidism [Recovered/Resolved]
  - Hepatitis [Unknown]
